FAERS Safety Report 6527092-8 (Version None)
Quarter: 2010Q1

REPORT INFORMATION
  Report Type: 
  Country: None (occurrence: None)
  Receive Date: 20100105
  Receipt Date: 20091224
  Transmission Date: 20100710
  Serious: Yes (Hospitalization)
  Sender: FDA-Public Use
  Company Number: TR-ELI_LILLY_AND_COMPANY-TR200912005707

PATIENT
  Age: 72 Year
  Sex: Male

DRUGS (4)
  1. HUMULIN 70/30 [Suspect]
     Indication: DIABETES MELLITUS
     Dosage: 20 IU, EACH MORNING
     Route: 058
     Dates: start: 19990101
  2. HUMULIN 70/30 [Suspect]
     Dosage: 14 IU, OTHER
     Route: 058
     Dates: start: 19990101
  3. HUMULIN 70/30 [Suspect]
     Dosage: 16 IU, EACH EVENING
     Route: 058
     Dates: start: 19990101
  4. DIOVAN HCT [Concomitant]
     Indication: HYPERTENSION
     Dosage: UNK UNK, DAILY (1/D)

REACTIONS (1)
  - DYSPNOEA [None]
